FAERS Safety Report 23234053 (Version 1)
Quarter: 2023Q4

REPORT INFORMATION
  Report Type: Spontaneous
  Country: RO (occurrence: RO)
  Receive Date: 20231128
  Receipt Date: 20231128
  Transmission Date: 20240110
  Serious: Yes (Death, Hospitalization)
  Sender: FDA-Public Use
  Company Number: RO-STRIDES ARCOLAB LIMITED-2023SP017626

PATIENT
  Sex: Male

DRUGS (22)
  1. DIAZEPAM [Suspect]
     Active Substance: DIAZEPAM
     Indication: Status epilepticus
     Dosage: UNK
     Route: 065
  2. DIAZEPAM [Suspect]
     Active Substance: DIAZEPAM
     Dosage: UNK
     Route: 065
  3. DEXAMETHASONE [Suspect]
     Active Substance: DEXAMETHASONE
     Indication: Product used for unknown indication
     Dosage: UNK (4 DAYS COURSE)
     Route: 065
  4. IMIPENEM AND CILASTATIN [Suspect]
     Active Substance: CILASTATIN SODIUM\IMIPENEM
     Indication: Serratia infection
     Dosage: UNK
     Route: 065
  5. MEROPENEM [Suspect]
     Active Substance: MEROPENEM
     Indication: Serratia infection
     Dosage: 40 MILLIGRAM/KILOGRAM/DOSE, EVERY 12 HRS
     Route: 042
  6. VANCOMYCIN [Suspect]
     Active Substance: VANCOMYCIN
     Indication: Serratia infection
     Dosage: 15 MILLIGRAM/KILOGRAM/DOSE, EVERY 12 HRS
     Route: 042
  7. NETILMICIN [Suspect]
     Active Substance: NETILMICIN
     Indication: Serratia infection
     Dosage: 4 MILLIGRAM/KILOGRAM PER DAY
     Route: 065
  8. CIPROFLOXACIN [Suspect]
     Active Substance: CIPROFLOXACIN
     Indication: Serratia infection
     Dosage: 20 MILLIGRAM/KILOGRAM PER DAY
     Route: 065
  9. CHLORAMPHENICOL [Suspect]
     Active Substance: CHLORAMPHENICOL
     Indication: Serratia infection
     Dosage: 10 MILLIGRAM/KILOGRAM/ DOSE DAILY
  10. AZTREONAM [Suspect]
     Active Substance: AZTREONAM
     Indication: Serratia infection
     Dosage: 30 MILLIGRAM/KILOGRAM/ DOSE, EVERY 8 HOURS
     Route: 042
  11. AZTREONAM [Suspect]
     Active Substance: AZTREONAM
     Dosage: UNK
     Route: 042
  12. AMIKACIN [Suspect]
     Active Substance: AMIKACIN
     Indication: Serratia infection
     Dosage: 10 MILLIGRAM/KILOGRAM/ DOSE, EVERY 8 HOURS
     Route: 042
  13. AMIKACIN [Suspect]
     Active Substance: AMIKACIN
     Dosage: 5 MILLIGRAM/KILOGRAM/DOSE DAILY
  14. GENTAMICIN [Suspect]
     Active Substance: GENTAMICIN
     Indication: Serratia infection
     Dosage: 2 MILLIGRAM/KILOGRAM PER DAY
  15. PHENYTOIN [Suspect]
     Active Substance: PHENYTOIN
     Indication: Status epilepticus
     Dosage: UNK
     Route: 065
  16. PHENYTOIN [Suspect]
     Active Substance: PHENYTOIN
     Dosage: UNK
     Route: 065
  17. THIOPENTAL [Suspect]
     Active Substance: THIOPENTAL
     Indication: Status epilepticus
     Dosage: UNK
     Route: 065
  18. FLUCONAZOLE [Suspect]
     Active Substance: FLUCONAZOLE
     Indication: Product used for unknown indication
     Dosage: UNK
     Route: 065
  19. INSULIN NOS [Suspect]
     Active Substance: INSULIN NOS
     Indication: Hyperglycaemia
     Dosage: UNK
     Route: 065
  20. PIPERACILLIN SODIUM\TAZOBACTAM SODIUM [Suspect]
     Active Substance: PIPERACILLIN SODIUM\TAZOBACTAM SODIUM
     Indication: Serratia infection
     Dosage: UNK
     Route: 042
  21. CEFEPIME [Suspect]
     Active Substance: CEFEPIME HYDROCHLORIDE
     Indication: Serratia infection
     Dosage: UNK
     Route: 042
  22. LINEZOLID [Suspect]
     Active Substance: LINEZOLID
     Indication: Serratia infection
     Dosage: UNK
     Route: 042

REACTIONS (10)
  - Abdominal compartment syndrome [Unknown]
  - Bradycardia [Unknown]
  - Candida infection [Fatal]
  - Intraventricular haemorrhage [Fatal]
  - CNS ventriculitis [Fatal]
  - Hydrocephalus [Fatal]
  - Drug ineffective [Fatal]
  - Disease progression [Fatal]
  - Hypotension [Unknown]
  - Off label use [Unknown]
